FAERS Safety Report 17610458 (Version 2)
Quarter: 2020Q2

REPORT INFORMATION
  Report Type: Spontaneous
  Country: US (occurrence: US)
  Receive Date: 20200401
  Receipt Date: 20200528
  Transmission Date: 20200713
  Serious: No
  Sender: FDA-Public Use
  Company Number: US-PFIZER INC-2020133794

PATIENT
  Age: 61 Year
  Sex: Female
  Weight: 65.76 kg

DRUGS (1)
  1. XELJANZ [Suspect]
     Active Substance: TOFACITINIB CITRATE
     Indication: RHEUMATOID ARTHRITIS
     Dosage: 5 MG, 2X/DAY
     Route: 048
     Dates: start: 20190707

REACTIONS (5)
  - Skin exfoliation [Unknown]
  - Weight increased [Unknown]
  - Therapeutic product effect incomplete [Unknown]
  - Product dose omission [Unknown]
  - Hypokinesia [Not Recovered/Not Resolved]
